FAERS Safety Report 8041898-8 (Version None)
Quarter: 2012Q1

REPORT INFORMATION
  Report Type: 
  Country: None (occurrence: None)
  Receive Date: 20120112
  Receipt Date: 20120112
  Transmission Date: 20120608
  Serious: Yes (Other)
  Sender: FDA-Public Use
  Company Number: None

PATIENT
  Age: 50 Year
  Sex: Male
  Weight: 95.254 kg

DRUGS (3)
  1. VALACYCLOVIR [Concomitant]
     Indication: GENITAL HERPES
     Dosage: 500MG
     Route: 048
     Dates: start: 20111214, end: 20120106
  2. PAROXETINE HCL [Suspect]
     Indication: OBSESSIVE-COMPULSIVE DISORDER
     Dosage: 40MG
     Route: 048
     Dates: start: 20110501, end: 20110601
  3. PAROXETINE HCL [Suspect]
     Indication: ANXIETY DISORDER
     Dosage: 40MG
     Route: 048
     Dates: start: 20110501, end: 20110601

REACTIONS (4)
  - DRUG INEFFECTIVE [None]
  - PRODUCT SUBSTITUTION ISSUE [None]
  - NERVOUSNESS [None]
  - ABDOMINAL PAIN [None]
